FAERS Safety Report 4711118-8 (Version None)
Quarter: 2005Q3

REPORT INFORMATION
  Report Type: 
  Country: None (occurrence: None)
  Receive Date: 20050708
  Receipt Date: 20050624
  Transmission Date: 20060218
  Serious: Yes (Hospitalization)
  Sender: FDA-Public Use
  Company Number: 2005-BP-10763RO

PATIENT
  Age: 48 Year
  Sex: Male

DRUGS (4)
  1. DIAZEPAM [Suspect]
  2. NORTRIPTYLINE HCL [Suspect]
  3. PAROXETINE HCL [Suspect]
  4. ZOPICLONE (ZOPICLONE) [Suspect]

REACTIONS (10)
  - ASPIRATION [None]
  - ATELECTASIS [None]
  - BLOOD PRESSURE DIASTOLIC INCREASED [None]
  - BRUGADA SYNDROME [None]
  - DYSPNOEA [None]
  - ELECTROCARDIOGRAM ST SEGMENT ELEVATION [None]
  - HEART RATE INCREASED [None]
  - LOSS OF CONSCIOUSNESS [None]
  - MULTIPLE DRUG OVERDOSE [None]
  - OXYGEN SATURATION DECREASED [None]
